FAERS Safety Report 5619975-8 (Version None)
Quarter: 2008Q1

REPORT INFORMATION
  Report Type: 
  Country: None (occurrence: None)
  Receive Date: 20080208
  Receipt Date: 20080201
  Transmission Date: 20080703
  Serious: Yes (Death)
  Sender: FDA-Public Use
  Company Number: US-BRACCO-BDI-010622

PATIENT
  Sex: Female
  Weight: 63 kg

DRUGS (40)
  1. ISOVUE-128 [Suspect]
     Indication: CATHETER RELATED COMPLICATION
     Route: 042
     Dates: start: 20071120, end: 20071120
  2. ISOVUE-128 [Suspect]
     Indication: ANGIOPLASTY
     Route: 042
     Dates: start: 20071120, end: 20071120
  3. BENADRYL                           /00647601/ [Concomitant]
     Route: 042
     Dates: start: 20071120, end: 20071120
  4. TOPROL-XL [Concomitant]
     Dosage: 100 MG QHS
     Route: 048
  5. INSULIN                            /00030501/ [Concomitant]
     Dosage: AC + HS SLDG SCALE
     Route: 058
  6. GLIPIZIDE [Concomitant]
     Dosage: 5 MG 1 1/2 TABLETS BID
     Route: 048
  7. HYDRALAZINE HCL [Concomitant]
     Route: 048
  8. CATAPRES                           /00171101/ [Concomitant]
     Dosage: #2 BID (POST-HD)
     Route: 048
  9. MINOXIDIL [Concomitant]
     Dosage: 2.5 MG Q PM
     Route: 048
  10. MIDODRINE [Concomitant]
     Dosage: ON HEMODIALYSIS - AS DIRECTED
     Route: 048
  11. ENTERIC ASPIRIN [Concomitant]
     Route: 048
  12. LOVASTATIN [Concomitant]
     Route: 048
  13. SYNTHROID [Concomitant]
     Dosage: 25 MCG
     Route: 048
  14. VASOTEC [Concomitant]
     Route: 048
  15. NEPHRO-VITE [Concomitant]
     Dosage: #1 QD
     Route: 048
  16. VICODIN [Concomitant]
     Route: 048
  17. MIRALAX [Concomitant]
     Route: 048
  18. SENOKOT                            /00142201/ [Concomitant]
     Dosage: #2 QHS
     Route: 048
  19. AMBIEN [Concomitant]
     Dosage: 5 MG PRN SLEEP
     Route: 048
  20. ACETAMINOPHEN [Concomitant]
     Dosage: 325 MG #2 Q4H PRN
     Route: 048
  21. LIDOCAINE                          /00033401/ [Concomitant]
     Route: 058
     Dates: start: 20071120, end: 20071120
  22. MIDAZOLAM                          /00634101/ [Concomitant]
     Route: 042
     Dates: start: 20071120, end: 20071120
  23. FENTANYL                           /00174601/ [Concomitant]
     Route: 042
     Dates: start: 20071120, end: 20071120
  24. HEPARIN                            /00027701/ [Concomitant]
     Dosage: 5000 UNITS
     Route: 065
     Dates: start: 20071120, end: 20071120
  25. NARCAN [Concomitant]
     Route: 042
     Dates: start: 20071120, end: 20071120
  26. SOLU-MEDROL [Concomitant]
     Route: 065
     Dates: start: 20071120, end: 20071120
  27. FLUMAZENIL [Concomitant]
     Dosage: 2 ML (0.2 MG)
     Route: 042
     Dates: start: 20071120, end: 20071120
  28. FLUMAZENIL [Concomitant]
     Dosage: 1 ML (0.1 MG)
     Route: 042
     Dates: start: 20071120, end: 20071120
  29. ATROPINE                           /00002801/ [Concomitant]
     Route: 042
     Dates: start: 20071120, end: 20071120
  30. ATROPINE                           /00002801/ [Concomitant]
     Route: 042
     Dates: start: 20071120, end: 20071120
  31. DOPAMINE                           /00360701/ [Concomitant]
     Dosage: 400 MG/250 ML
     Route: 065
     Dates: start: 20071120, end: 20071120
  32. EPINEPHRINE                        /00003901/ [Concomitant]
     Route: 042
     Dates: start: 20071120, end: 20071120
  33. EPINEPHRINE                        /00003901/ [Concomitant]
     Dosage: EPI-PEN
     Route: 042
     Dates: start: 20071120, end: 20071120
  34. EPINEPHRINE                        /00003901/ [Concomitant]
     Route: 042
     Dates: start: 20071120, end: 20071120
  35. EPINEPHRINE                        /00003901/ [Concomitant]
     Route: 042
     Dates: start: 20071120, end: 20071120
  36. HYDROCORTISONE                     /00028601/ [Concomitant]
     Route: 042
     Dates: start: 20071120, end: 20071120
  37. SODIUM BICARBONATE [Concomitant]
     Dosage: AMPULE
     Route: 042
     Dates: start: 20071120, end: 20071120
  38. CALCIUM CHLORIDE                   /00203801/ [Concomitant]
     Route: 042
     Dates: start: 20071120, end: 20071120
  39. LACTULOSE [Concomitant]
     Route: 065
  40. SALINE MIXTURE [Concomitant]
     Dosage: 0.9 % NOMAL SALINE
     Route: 065
     Dates: start: 20071120, end: 20071120

REACTIONS (1)
  - HYPERSENSITIVITY [None]
